FAERS Safety Report 6247242-0 (Version None)
Quarter: 2009Q2

REPORT INFORMATION
  Report Type: 
  Country: None (occurrence: None)
  Receive Date: 20090626
  Receipt Date: 20090617
  Transmission Date: 20091009
  Serious: Yes (Other)
  Sender: FDA-Public Use
  Company Number: B0577880A

PATIENT
  Sex: Female
  Weight: 76 kg

DRUGS (2)
  1. ALLI [Suspect]
     Dosage: 180MG PER DAY
     Route: 065
     Dates: start: 20090509, end: 20090530
  2. FLUOXETINE HCL [Concomitant]
     Route: 065
     Dates: start: 20090201

REACTIONS (3)
  - HAEMATOCHEZIA [None]
  - INTENTIONAL DRUG MISUSE [None]
  - RECTAL HAEMORRHAGE [None]
